FAERS Safety Report 10481761 (Version 2)
Quarter: 2015Q1

REPORT INFORMATION
  Report Type: Spontaneous
  Country: IT (occurrence: IT)
  Receive Date: 20140929
  Receipt Date: 20150108
  Transmission Date: 20150720
  Serious: Yes (Hospitalization)
  Sender: FDA-Public Use
  Company Number: IT-PFIZER INC-2014267201

PATIENT
  Age: 27 Year
  Sex: Female

DRUGS (4)
  1. TACHIPIRINA [Suspect]
     Active Substance: ACETAMINOPHEN
     Dosage: 8 DF, TOTAL
     Route: 048
     Dates: start: 20140107, end: 20140107
  2. ZOLOFT [Suspect]
     Active Substance: SERTRALINE HYDROCHLORIDE
     Dosage: 32 DF, TOTAL
     Route: 048
     Dates: start: 20140107, end: 20140107
  3. EN [Suspect]
     Active Substance: DELORAZEPAM
     Dosage: 20 ML, TOTAL
     Route: 048
     Dates: start: 20140107, end: 20140107
  4. FELISON [Suspect]
     Active Substance: FLURAZEPAM MONOHYDROCHLORIDE
     Dosage: 150 DF, TOTAL
     Route: 048
     Dates: start: 20140107, end: 20140107

REACTIONS (3)
  - Drug abuse [Unknown]
  - Suicidal behaviour [Unknown]
  - Loss of consciousness [Unknown]

NARRATIVE: CASE EVENT DATE: 20140107
